FAERS Safety Report 4682558-0 (Version None)
Quarter: 2005Q2

REPORT INFORMATION
  Report Type: 
  Country: None (occurrence: None)
  Receive Date: 20050606
  Receipt Date: 20050525
  Transmission Date: 20051028
  Serious: Yes (Hospitalization)
  Sender: FDA-Public Use
  Company Number: US-JNJFOC-20050303668

PATIENT
  Sex: Male
  Weight: 77.11 kg

DRUGS (7)
  1. OXYBUTYNIN HYDROCHLORIDE [Suspect]
     Route: 049
  2. OXYBUTYNIN HYDROCHLORIDE [Suspect]
     Indication: URINARY TRACT DISORDER
     Route: 049
  3. FLOMAX [Suspect]
     Indication: URINARY TRACT DISORDER
     Route: 049
  4. COUMADIN [Concomitant]
     Indication: PROPHYLAXIS
  5. CENTRUM [Concomitant]
     Route: 049
  6. CENTRUM [Concomitant]
     Indication: GENERAL PHYSICAL CONDITION
     Route: 049
  7. OCCUPLEX [Concomitant]
     Indication: GENERAL PHYSICAL CONDITION
     Route: 049

REACTIONS (30)
  - ABDOMINAL PAIN UPPER [None]
  - ACTIVATED PARTIAL THROMBOPLASTIN TIME PROLONGED [None]
  - ACUTE RESPIRATORY FAILURE [None]
  - AZOTAEMIA [None]
  - BLOOD CHLORIDE INCREASED [None]
  - BLOOD ELECTROLYTES ABNORMAL [None]
  - BLOOD SODIUM INCREASED [None]
  - DYSPHAGIA [None]
  - HAEMATOCRIT DECREASED [None]
  - HYPERNATRAEMIA [None]
  - HYPERTENSION [None]
  - ILEUS PARALYTIC [None]
  - INTERNATIONAL NORMALISED RATIO INCREASED [None]
  - INTESTINAL OBSTRUCTION [None]
  - KLEBSIELLA INFECTION [None]
  - LUNG INFECTION [None]
  - LUNG INFILTRATION [None]
  - METABOLIC ENCEPHALOPATHY [None]
  - PCO2 DECREASED [None]
  - PERITONEAL ADHESIONS [None]
  - PLATELET COUNT DECREASED [None]
  - PNEUMONIA ASPIRATION [None]
  - PNEUMONIA KLEBSIELLA [None]
  - PYREXIA [None]
  - RENAL DISORDER [None]
  - RENAL FAILURE ACUTE [None]
  - RENAL TUBULAR NECROSIS [None]
  - SMALL INTESTINAL OBSTRUCTION [None]
  - URINARY TRACT INFECTION [None]
  - WHITE BLOOD CELL COUNT INCREASED [None]
